FAERS Safety Report 5796225-3 (Version None)
Quarter: 2008Q3

REPORT INFORMATION
  Report Type: 
  Country: None (occurrence: None)
  Receive Date: 20080701
  Receipt Date: 20080626
  Transmission Date: 20090109
  Serious: Yes (Hospitalization)
  Sender: FDA-Public Use
  Company Number: GB-ROCHE-572768

PATIENT
  Sex: Female
  Weight: 92.1 kg

DRUGS (1)
  1. ORLISTAT [Suspect]
     Indication: OBESITY
     Route: 048
     Dates: start: 20080203

REACTIONS (2)
  - DEPRESSION [None]
  - MULTIPLE SCLEROSIS [None]
